FAERS Safety Report 16941450 (Version 2)
Quarter: 2019Q4

REPORT INFORMATION
  Report Type: Report from Study
  Country: AR (occurrence: AR)
  Receive Date: 20191021
  Receipt Date: 20191106
  Transmission Date: 20200122
  Serious: Yes (Hospitalization, Other)
  Sender: FDA-Public Use
  Company Number: AR-SHIRE-AR201933467

PATIENT

DRUGS (4)
  1. REVESTIVE [Suspect]
     Active Substance: TEDUGLUTIDE
     Indication: SHORT-BOWEL SYNDROME
     Dosage: UNK
     Route: 065
     Dates: start: 201907
  2. REVESTIVE [Suspect]
     Active Substance: TEDUGLUTIDE
     Dosage: 2.7 MILLIGRAM, 1X/DAY:QD
     Route: 058
     Dates: start: 20180607
  3. REVESTIVE [Suspect]
     Active Substance: TEDUGLUTIDE
     Dosage: UNK
     Route: 058
     Dates: start: 20190923
  4. REVESTIVE [Suspect]
     Active Substance: TEDUGLUTIDE
     Dosage: 2.7 MILLIGRAM, 1X/DAY:QD
     Route: 058
     Dates: start: 20190805

REACTIONS (6)
  - Eyelid oedema [Unknown]
  - Acute kidney injury [Recovering/Resolving]
  - Rheumatoid arthritis [Recovering/Resolving]
  - Arthralgia [Recovering/Resolving]
  - Glomerulonephritis rapidly progressive [Unknown]
  - Granuloma [Recovering/Resolving]

NARRATIVE: CASE EVENT DATE: 201908
